FAERS Safety Report 11491881 (Version 1)
Quarter: 2015Q3

REPORT INFORMATION
  Report Type: Spontaneous
  Country: US (occurrence: None)
  Receive Date: 20150909
  Receipt Date: 20150909
  Transmission Date: 20151125
  Serious: No
  Sender: FDA-Public Use
  Company Number: None

PATIENT
  Age: 57 Year
  Sex: Female
  Weight: 63.5 kg

DRUGS (2)
  1. REMICADE [Suspect]
     Active Substance: INFLIXIMAB
     Dosage: WEEK 0,2,6 EVERY 8
     Route: 042
     Dates: start: 20150819, end: 20150819
  2. PREDNISONE. [Suspect]
     Active Substance: PREDNISONE

REACTIONS (2)
  - Arthralgia [None]
  - Alopecia [None]

NARRATIVE: CASE EVENT DATE: 20150903
